FAERS Safety Report 5070972-3 (Version None)
Quarter: 2006Q3

REPORT INFORMATION
  Report Type: 
  Country: None (occurrence: None)
  Receive Date: 20060714
  Receipt Date: 20060425
  Transmission Date: 20061208
  Serious: No
  Sender: FDA-Public Use
  Company Number: 2006SP001826

PATIENT
  Age: 87 Year
  Sex: Male
  Weight: 80.7403 kg

DRUGS (9)
  1. LUNESTA [Suspect]
     Indication: DRUG USE FOR UNKNOWN INDICATION
     Dosage: SEE IMAGE
     Route: 048
     Dates: start: 20050101, end: 20050101
  2. LUNESTA [Suspect]
     Indication: DRUG USE FOR UNKNOWN INDICATION
     Dosage: SEE IMAGE
     Route: 048
     Dates: start: 20050101
  3. COREG [Concomitant]
  4. WARFARIN SODIUM [Concomitant]
  5. SINGULAIR [Concomitant]
  6. TYLENOL [Concomitant]
  7. CLARITIN [Concomitant]
  8. PANTOPRAZOLE SODIUM [Concomitant]
  9. TAMSULOSIN HCL [Concomitant]

REACTIONS (3)
  - DRUG EFFECT DECREASED [None]
  - DRUG INEFFECTIVE [None]
  - INSOMNIA [None]
